FAERS Safety Report 13094198 (Version 2)
Quarter: 2017Q1

REPORT INFORMATION
  Report Type: Spontaneous
  Country: US (occurrence: US)
  Receive Date: 20170106
  Receipt Date: 20170109
  Transmission Date: 20170428
  Serious: Yes (Death)
  Sender: FDA-Public Use
  Company Number: US-BAYER-2017-001609

PATIENT
  Age: 54 Year
  Sex: Female

DRUGS (4)
  1. ACETYLSALICYLIC ACID (} 100 MG) [Suspect]
     Active Substance: ASPIRIN
  2. ACETAMINOPHEN. [Suspect]
     Active Substance: ACETAMINOPHEN
  3. LAMOTRIGINE. [Suspect]
     Active Substance: LAMOTRIGINE
  4. QUETIAPINE. [Suspect]
     Active Substance: QUETIAPINE

REACTIONS (1)
  - Toxicity to various agents [Fatal]
